FAERS Safety Report 21710983 (Version 6)
Quarter: 2023Q1

REPORT INFORMATION
  Report Type: Report from Study
  Country: BR (occurrence: BR)
  Receive Date: 20221212
  Receipt Date: 20230125
  Transmission Date: 20230418
  Serious: Yes (Hospitalization)
  Sender: FDA-Public Use
  Company Number: BR-JNJFOC-20221212363

PATIENT
  Age: 16 Year
  Sex: Male
  Weight: 62 kg

DRUGS (10)
  1. INFLIXIMAB [Suspect]
     Active Substance: INFLIXIMAB
     Indication: Crohn^s disease
     Route: 041
     Dates: start: 20221028
  2. REMICADE [Suspect]
     Active Substance: INFLIXIMAB
     Indication: Crohn^s disease
     Dosage: USED ONLY ONE VIAL IN THE FIRST ATTACK DOSE AND WAS USING THREE VIALS IN THE TWO OTHER ATTACK DOSES
     Route: 041
     Dates: start: 20221028
  3. MESALAMINE [Concomitant]
     Active Substance: MESALAMINE
  4. MESALAMINE [Concomitant]
     Active Substance: MESALAMINE
  5. AZATHIOPRINE [Concomitant]
     Active Substance: AZATHIOPRINE
  6. SUCRALFATE [Concomitant]
     Active Substance: SUCRALFATE
  7. PROBIATOP [Concomitant]
  8. CARBOHYDRATES\FATTY ACIDS\MINERALS\PROTEIN\VITAMINS [Concomitant]
     Active Substance: CARBOHYDRATES\FATTY ACIDS\MINERALS\PROTEIN\VITAMINS
  9. VONAL [Concomitant]
  10. DIMETHICONE [Concomitant]
     Active Substance: DIMETHICONE

REACTIONS (4)
  - Crohn^s disease [Unknown]
  - Drug resistance [Unknown]
  - Drug ineffective [Unknown]
  - Off label use [Unknown]
